FAERS Safety Report 7289225-8 (Version None)
Quarter: 2011Q1

REPORT INFORMATION
  Report Type: 
  Country: None (occurrence: None)
  Receive Date: 20110211
  Receipt Date: 20100218
  Transmission Date: 20110831
  Serious: Yes (Other)
  Sender: FDA-Public Use
  Company Number: NL-NOVEN-10NL001753

PATIENT
  Age: 36 Year
  Sex: Male

DRUGS (1)
  1. PAROXETINE HCL [Suspect]
     Indication: DEPRESSION
     Dosage: 30 MG, UNKNOWN
     Route: 048

REACTIONS (4)
  - HOMICIDAL IDEATION [None]
  - AGGRESSION [None]
  - IMPULSE-CONTROL DISORDER [None]
  - FOOD INTERACTION [None]
